FAERS Safety Report 5024890-7 (Version None)
Quarter: 2006Q2

REPORT INFORMATION
  Report Type: 
  Country: None (occurrence: None)
  Receive Date: 20060607
  Receipt Date: 20060524
  Transmission Date: 20061013
  Serious: Yes (Death)
  Sender: FDA-Public Use
  Company Number: FABR-11527

PATIENT
  Age: 54 Year
  Sex: Male
  Weight: 55 kg

DRUGS (8)
  1. FABRAZYME [Suspect]
     Indication: FABRY'S DISEASE
     Dosage: 1 MG/KG Q2WKS IV
     Route: 042
     Dates: start: 20020320, end: 20060507
  2. DACORTIN [Concomitant]
  3. PROGRAF [Concomitant]
  4. CELLCEPT [Concomitant]
  5. AAS [Concomitant]
  6. ROCALTROL [Concomitant]
  7. FUROSEMIDE [Concomitant]
  8. ALDACTONE [Concomitant]

REACTIONS (7)
  - ATRIOVENTRICULAR BLOCK COMPLETE [None]
  - CARDIAC ARREST [None]
  - DIZZINESS [None]
  - FALL [None]
  - HIP FRACTURE [None]
  - SYNCOPE [None]
  - VENTRICULAR ARRHYTHMIA [None]
